FAERS Safety Report 8250369-5 (Version None)
Quarter: 2012Q2

REPORT INFORMATION
  Report Type: 
  Country: None (occurrence: None)
  Receive Date: 20120402
  Receipt Date: 20120322
  Transmission Date: 20120825
  Serious: Yes (Other)
  Sender: FDA-Public Use
  Company Number: RU-ASTRAZENECA-2012SE19918

PATIENT
  Sex: Female

DRUGS (1)
  1. METOPROLOL SUCCINATE [Suspect]
     Indication: ARRHYTHMIA
     Route: 048
     Dates: start: 20110101, end: 20110101

REACTIONS (4)
  - MUSCULAR WEAKNESS [None]
  - ARRHYTHMIA [None]
  - VENOUS INSUFFICIENCY [None]
  - WITHDRAWAL SYNDROME [None]
